FAERS Safety Report 10997245 (Version 1)
Quarter: 2015Q2

REPORT INFORMATION
  Report Type: Spontaneous
  Country: US (occurrence: US)
  Receive Date: 20150408
  Receipt Date: 20150408
  Transmission Date: 20150821
  Serious: No
  Sender: FDA-Public Use
  Company Number: US-BANPHARM-20142432

PATIENT
  Age: 29 Year
  Sex: Female
  Weight: 56.7 kg

DRUGS (2)
  1. ALEVE [Suspect]
     Active Substance: NAPROXEN SODIUM
     Indication: BACK PAIN
     Dosage: 2 DF, PRN,
     Route: 048
     Dates: start: 20140206
  2. TOPAMAX [Concomitant]
     Active Substance: TOPIRAMATE

REACTIONS (1)
  - Drug effect incomplete [Unknown]

NARRATIVE: CASE EVENT DATE: 20140206
